FAERS Safety Report 7427611 (Version 8)
Quarter: 2017Q1

REPORT INFORMATION
  Report Type: Report from Study
  Country: JP (occurrence: JP)
  Receive Date: 20100622
  Receipt Date: 20170222
  Transmission Date: 20170429
  Serious: Yes (Hospitalization)
  Sender: FDA-Public Use
  Company Number: JP-ROCHE-709322

PATIENT
  Age: 18 Year
  Sex: Female
  Weight: 40 kg

DRUGS (54)
  1. PREDNISOLONE. [Suspect]
     Active Substance: PREDNISOLONE
     Indication: JUVENILE IDIOPATHIC ARTHRITIS
     Route: 048
     Dates: start: 20090512, end: 20090608
  2. PREDNISOLONE. [Suspect]
     Active Substance: PREDNISOLONE
     Route: 048
     Dates: start: 20090609, end: 20090701
  3. PREDNISOLONE. [Suspect]
     Active Substance: PREDNISOLONE
     Route: 048
     Dates: start: 20090827, end: 20090923
  4. PREDNISOLONE. [Suspect]
     Active Substance: PREDNISOLONE
     Route: 048
     Dates: start: 20090924, end: 20100602
  5. PREDNISOLONE. [Suspect]
     Active Substance: PREDNISOLONE
     Route: 048
     Dates: start: 20100617, end: 20100623
  6. SANDIMMUN [Suspect]
     Active Substance: CYCLOSPORINE
     Indication: JUVENILE IDIOPATHIC ARTHRITIS
     Route: 041
     Dates: start: 20100602, end: 20100605
  7. SANDIMMUN [Suspect]
     Active Substance: CYCLOSPORINE
     Route: 041
     Dates: start: 20100628, end: 20100629
  8. NEORAL [Suspect]
     Active Substance: CYCLOSPORINE
     Dosage: FORM: PER ORAL AGENT
     Route: 048
     Dates: start: 20100430, end: 20100530
  9. NEORAL [Suspect]
     Active Substance: CYCLOSPORINE
     Dosage: FORM: PER ORAL AGENT
     Route: 048
     Dates: start: 20100531, end: 20100601
  10. TOCILIZUMAB [Suspect]
     Active Substance: TOCILIZUMAB
     Indication: JUVENILE IDIOPATHIC ARTHRITIS
     Route: 041
     Dates: start: 20090818, end: 20100610
  11. PREDNISOLONE. [Suspect]
     Active Substance: PREDNISOLONE
     Dosage: STOP DATE: JULY 2010
     Route: 048
     Dates: start: 20100723
  12. DEXAMETHASONE PALMITATE [Suspect]
     Active Substance: DEXAMETHASONE
     Route: 041
     Dates: start: 20100606, end: 20100607
  13. DEXAMETHASONE PALMITATE [Suspect]
     Active Substance: DEXAMETHASONE
     Dosage: STOP DATE: JUNE 2010. DOSAGE IS UNCERTAIN
     Route: 041
  14. DEXAMETHASONE PALMITATE [Suspect]
     Active Substance: DEXAMETHASONE
     Route: 041
     Dates: start: 20100718, end: 20100720
  15. SANDIMMUN [Suspect]
     Active Substance: CYCLOSPORINE
     Route: 041
     Dates: start: 20100617, end: 20100618
  16. SANDIMMUN [Suspect]
     Active Substance: CYCLOSPORINE
     Route: 041
     Dates: start: 20100618, end: 20100619
  17. NEORAL [Suspect]
     Active Substance: CYCLOSPORINE
     Dosage: FORM: PER ORAL AGENT
     Route: 048
     Dates: start: 20091113, end: 20091210
  18. NEORAL [Suspect]
     Active Substance: CYCLOSPORINE
     Route: 048
     Dates: start: 20100605, end: 20100614
  19. SOLU-MEDROL [Suspect]
     Active Substance: METHYLPREDNISOLONE SODIUM SUCCINATE
     Route: 041
     Dates: start: 20100624, end: 20100626
  20. GLAKAY [Concomitant]
     Active Substance: MENATETRENONE
     Route: 048
  21. TRYPTANOL [Concomitant]
     Active Substance: AMITRIPTYLINE
     Dosage: DOSE FORM: PERORAL AGENT
     Route: 048
     Dates: start: 20090827, end: 20090928
  22. SELBEX [Concomitant]
     Active Substance: TEPRENONE
     Route: 048
     Dates: start: 20100617, end: 20100629
  23. PREDNISOLONE. [Suspect]
     Active Substance: PREDNISOLONE
     Route: 048
     Dates: start: 20090702, end: 20090729
  24. PREDNISOLONE. [Suspect]
     Active Substance: PREDNISOLONE
     Route: 048
     Dates: start: 20100627, end: 20100629
  25. DEXAMETHASONE PALMITATE [Suspect]
     Active Substance: DEXAMETHASONE
     Indication: JUVENILE IDIOPATHIC ARTHRITIS
     Route: 041
     Dates: start: 20100602, end: 20100602
  26. GLAKAY [Concomitant]
     Active Substance: MENATETRENONE
     Route: 048
     Dates: start: 20100607, end: 20100629
  27. SHIN-BIOFERMIN S [Concomitant]
     Route: 048
     Dates: start: 20090827, end: 20090928
  28. PREDNISOLONE. [Suspect]
     Active Substance: PREDNISOLONE
     Route: 048
     Dates: start: 20090730, end: 20090826
  29. PREDNISOLONE. [Suspect]
     Active Substance: PREDNISOLONE
     Route: 048
     Dates: start: 20100731
  30. DEXAMETHASONE PALMITATE [Suspect]
     Active Substance: DEXAMETHASONE
     Route: 041
     Dates: start: 20100726, end: 20100731
  31. SOLU-MEDROL [Suspect]
     Active Substance: METHYLPREDNISOLONE SODIUM SUCCINATE
     Indication: JUVENILE IDIOPATHIC ARTHRITIS
     Route: 041
     Dates: start: 20100614, end: 20100616
  32. DEXAMETHASONE PALMITATE [Suspect]
     Active Substance: DEXAMETHASONE
     Route: 041
     Dates: start: 20100608, end: 20100610
  33. SANDIMMUN [Suspect]
     Active Substance: CYCLOSPORINE
     Route: 041
  34. SHIN-BIOFERMIN S [Concomitant]
     Route: 048
     Dates: start: 20100617, end: 20100629
  35. TOCILIZUMAB [Suspect]
     Active Substance: TOCILIZUMAB
     Route: 041
     Dates: start: 20100716, end: 20100716
  36. DEXAMETHASONE PALMITATE [Suspect]
     Active Substance: DEXAMETHASONE
     Route: 041
     Dates: start: 20100605, end: 20100605
  37. SANDIMMUN [Suspect]
     Active Substance: CYCLOSPORINE
     Route: 041
     Dates: start: 20100614, end: 20100617
  38. NEORAL [Suspect]
     Active Substance: CYCLOSPORINE
     Dosage: FORM: PER ORAL AGENT
     Route: 048
     Dates: start: 20091211, end: 20100107
  39. NEORAL [Suspect]
     Active Substance: CYCLOSPORINE
     Dosage: FORM: PER ORAL AGENT
     Route: 048
     Dates: start: 20100108, end: 20100204
  40. NEORAL [Suspect]
     Active Substance: CYCLOSPORINE
     Dosage: FORM: PER ORAL AGENT
     Route: 048
     Dates: start: 20100205, end: 20100304
  41. NEORAL [Suspect]
     Active Substance: CYCLOSPORINE
     Dosage: FORM: PER ORAL AGENT
     Route: 048
     Dates: start: 20100305, end: 20100401
  42. NEORAL [Suspect]
     Active Substance: CYCLOSPORINE
     Dosage: FORM: PER ORAL AGENT
     Route: 048
     Dates: start: 20100602, end: 20100602
  43. NEORAL [Suspect]
     Active Substance: CYCLOSPORINE
     Route: 048
     Dates: start: 20100619, end: 20100628
  44. ULCERLMIN [Concomitant]
     Active Substance: SUCRALFATE
     Route: 048
     Dates: start: 20090827, end: 20090928
  45. FAMOTIDINE. [Concomitant]
     Active Substance: FAMOTIDINE
     Dosage: DOSE FORM: PERORAL AGENT
     Route: 048
     Dates: start: 20100602, end: 20100629
  46. DEXAMETHASONE PALMITATE [Suspect]
     Active Substance: DEXAMETHASONE
     Route: 041
     Dates: start: 20100603, end: 20100604
  47. DEXAMETHASONE PALMITATE [Suspect]
     Active Substance: DEXAMETHASONE
     Route: 041
     Dates: start: 20100721, end: 20100722
  48. NEORAL [Suspect]
     Active Substance: CYCLOSPORINE
     Indication: JUVENILE IDIOPATHIC ARTHRITIS
     Dosage: FORM: PER ORAL AGENT
     Route: 048
  49. BEZATOL SR [Concomitant]
     Active Substance: BEZAFIBRATE
     Dosage: FORM: SUSTAINED RELEASE TABLET
     Route: 048
  50. ULCERLMIN [Concomitant]
     Active Substance: SUCRALFATE
     Route: 048
  51. NEORAL [Suspect]
     Active Substance: CYCLOSPORINE
     Dosage: FORM: PER ORAL AGENT
     Route: 048
     Dates: start: 20100402, end: 20100429
  52. BEZATOL SR [Concomitant]
     Active Substance: BEZAFIBRATE
     Dosage: FORM: SUSTAINED RELEASE TABLET
     Route: 048
     Dates: start: 20100607, end: 20100629
  53. SHIN-BIOFERMIN S [Concomitant]
     Dosage: FORM:PERORAL AGENT
     Route: 048
  54. TRYPTANOL [Concomitant]
     Active Substance: AMITRIPTYLINE
     Route: 048

REACTIONS (2)
  - Serratia sepsis [Recovered/Resolved]
  - Histiocytosis haematophagic [Recovering/Resolving]

NARRATIVE: CASE EVENT DATE: 20100531
